FAERS Safety Report 17681019 (Version 22)
Quarter: 2025Q3

REPORT INFORMATION
  Report Type: Spontaneous
  Country: CA (occurrence: CA)
  Receive Date: 20200417
  Receipt Date: 20250815
  Transmission Date: 20251020
  Serious: Yes (Life-Threatening, Hospitalization, Disabling, Other)
  Sender: ALEXION PHARMACEUTICALS
  Company Number: 2019SE56192

PATIENT
  Age: 61 Year
  Sex: Female
  Weight: 70 kg

DRUGS (324)
  1. NEXIUM 24HR [Suspect]
     Active Substance: ESOMEPRAZOLE MAGNESIUM
     Indication: Product used for unknown indication
  2. NEXIUM 24HR [Suspect]
     Active Substance: ESOMEPRAZOLE MAGNESIUM
  3. NEXIUM 24HR [Suspect]
     Active Substance: ESOMEPRAZOLE MAGNESIUM
  4. NEXIUM 24HR [Suspect]
     Active Substance: ESOMEPRAZOLE MAGNESIUM
     Route: 065
  5. NEXIUM 24HR [Suspect]
     Active Substance: ESOMEPRAZOLE MAGNESIUM
  6. NEXIUM 24HR [Suspect]
     Active Substance: ESOMEPRAZOLE MAGNESIUM
     Route: 065
  7. NEXIUM 24HR [Suspect]
     Active Substance: ESOMEPRAZOLE MAGNESIUM
     Route: 065
  8. NEXIUM 24HR [Suspect]
     Active Substance: ESOMEPRAZOLE MAGNESIUM
  9. NEXIUM 24HR [Suspect]
     Active Substance: ESOMEPRAZOLE MAGNESIUM
  10. LISINOPRIL [Suspect]
     Active Substance: LISINOPRIL
     Indication: Hypertension
  11. LISINOPRIL [Suspect]
     Active Substance: LISINOPRIL
  12. LISINOPRIL [Suspect]
     Active Substance: LISINOPRIL
  13. LISINOPRIL [Suspect]
     Active Substance: LISINOPRIL
  14. LISINOPRIL [Suspect]
     Active Substance: LISINOPRIL
  15. LISINOPRIL [Suspect]
     Active Substance: LISINOPRIL
  16. LISINOPRIL [Suspect]
     Active Substance: LISINOPRIL
  17. LISINOPRIL [Suspect]
     Active Substance: LISINOPRIL
  18. LISINOPRIL [Suspect]
     Active Substance: LISINOPRIL
  19. CANDESARTAN CILEXETIL [Suspect]
     Active Substance: CANDESARTAN CILEXETIL
     Indication: Hypertension
     Route: 065
  20. CANDESARTAN CILEXETIL [Suspect]
     Active Substance: CANDESARTAN CILEXETIL
  21. CANDESARTAN CILEXETIL [Suspect]
     Active Substance: CANDESARTAN CILEXETIL
  22. CANDESARTAN CILEXETIL [Suspect]
     Active Substance: CANDESARTAN CILEXETIL
     Route: 065
  23. CANDESARTAN CILEXETIL [Suspect]
     Active Substance: CANDESARTAN CILEXETIL
     Dosage: 150 MILLIGRAM, QD
  24. ESOMEPRAZOLE\NAPROXEN [Suspect]
     Active Substance: ESOMEPRAZOLE\NAPROXEN
     Indication: Product used for unknown indication
  25. ESOMEPRAZOLE\NAPROXEN [Suspect]
     Active Substance: ESOMEPRAZOLE\NAPROXEN
  26. ESOMEPRAZOLE\NAPROXEN [Suspect]
     Active Substance: ESOMEPRAZOLE\NAPROXEN
  27. ESOMEPRAZOLE\NAPROXEN [Suspect]
     Active Substance: ESOMEPRAZOLE\NAPROXEN
  28. ESOMEPRAZOLE\NAPROXEN [Suspect]
     Active Substance: ESOMEPRAZOLE\NAPROXEN
  29. ONDANSETRON [Suspect]
     Active Substance: ONDANSETRON
     Indication: Product used for unknown indication
     Route: 065
  30. ONDANSETRON [Suspect]
     Active Substance: ONDANSETRON
  31. CALCIUM CARBONATE [Suspect]
     Active Substance: CALCIUM CARBONATE
     Indication: Product used for unknown indication
     Route: 065
  32. CALCIUM CARBONATE [Suspect]
     Active Substance: CALCIUM CARBONATE
     Dosage: 20 MILLIGRAM, QD
     Route: 065
  33. MORPHINE SULFATE [Suspect]
     Active Substance: MORPHINE SULFATE
     Indication: Product used for unknown indication
     Route: 065
  34. MORPHINE SULFATE [Suspect]
     Active Substance: MORPHINE SULFATE
  35. MORPHINE SULFATE [Suspect]
     Active Substance: MORPHINE SULFATE
  36. MORPHINE SULFATE [Suspect]
     Active Substance: MORPHINE SULFATE
     Route: 065
  37. ACETAMINOPHEN [Suspect]
     Active Substance: ACETAMINOPHEN
     Indication: Product used for unknown indication
     Dosage: 650 MILLIGRAM, QD
  38. ACETAMINOPHEN [Suspect]
     Active Substance: ACETAMINOPHEN
     Indication: Arthritis
     Dosage: 650 MILLIGRAM, QD
  39. ACETAMINOPHEN [Suspect]
     Active Substance: ACETAMINOPHEN
     Dosage: 650 MG, QD
  40. ALISKIREN HEMIFUMARATE [Suspect]
     Active Substance: ALISKIREN HEMIFUMARATE
     Indication: Off label use
     Dosage: 300 MILLIGRAM, QD
  41. ALISKIREN HEMIFUMARATE [Suspect]
     Active Substance: ALISKIREN HEMIFUMARATE
     Indication: Hypertension
     Dosage: 150 MILLIGRAM, QD
  42. ALISKIREN HEMIFUMARATE [Suspect]
     Active Substance: ALISKIREN HEMIFUMARATE
     Indication: Microalbuminuria
     Dosage: 150 MILLIGRAM, QD
  43. ALISKIREN HEMIFUMARATE [Suspect]
     Active Substance: ALISKIREN HEMIFUMARATE
     Indication: Product used for unknown indication
     Dosage: 150 MILLIGRAM, QD
  44. ALISKIREN HEMIFUMARATE [Suspect]
     Active Substance: ALISKIREN HEMIFUMARATE
     Dosage: 300 MILLIGRAM, QD
  45. ALISKIREN HEMIFUMARATE [Suspect]
     Active Substance: ALISKIREN HEMIFUMARATE
     Dosage: 300 MILLIGRAM, QD
  46. ALISKIREN HEMIFUMARATE [Suspect]
     Active Substance: ALISKIREN HEMIFUMARATE
     Dosage: 150 MILLIGRAM, QD
  47. ALISKIREN HEMIFUMARATE [Suspect]
     Active Substance: ALISKIREN HEMIFUMARATE
     Dosage: 300 MILLIGRAM, QD
  48. ALISKIREN HEMIFUMARATE [Suspect]
     Active Substance: ALISKIREN HEMIFUMARATE
  49. ALISKIREN HEMIFUMARATE [Suspect]
     Active Substance: ALISKIREN HEMIFUMARATE
  50. ALISKIREN HEMIFUMARATE [Suspect]
     Active Substance: ALISKIREN HEMIFUMARATE
  51. ALISKIREN HEMIFUMARATE [Suspect]
     Active Substance: ALISKIREN HEMIFUMARATE
     Dosage: 150 MG, QD
  52. ALISKIREN HEMIFUMARATE [Suspect]
     Active Substance: ALISKIREN HEMIFUMARATE
     Dosage: 150 MG, QD
  53. ALISKIREN HEMIFUMARATE [Suspect]
     Active Substance: ALISKIREN HEMIFUMARATE
     Dosage: 150 MG, QD
  54. ALISKIREN HEMIFUMARATE [Suspect]
     Active Substance: ALISKIREN HEMIFUMARATE
     Dosage: 300 MG, QD
  55. ALISKIREN HEMIFUMARATE [Suspect]
     Active Substance: ALISKIREN HEMIFUMARATE
     Dosage: 150 MG, QD
  56. ALISKIREN HEMIFUMARATE [Suspect]
     Active Substance: ALISKIREN HEMIFUMARATE
     Dosage: 300 MG, QD
  57. ALISKIREN HEMIFUMARATE [Suspect]
     Active Substance: ALISKIREN HEMIFUMARATE
     Dosage: 300 MG, QD
  58. ALISKIREN HEMIFUMARATE [Suspect]
     Active Substance: ALISKIREN HEMIFUMARATE
     Dosage: 300 MG, QD
  59. ALTACE [Suspect]
     Active Substance: RAMIPRIL
     Indication: Product used for unknown indication
  60. ALTACE [Suspect]
     Active Substance: RAMIPRIL
     Route: 065
  61. ALTACE [Suspect]
     Active Substance: RAMIPRIL
  62. ALTACE [Suspect]
     Active Substance: RAMIPRIL
  63. ALTACE [Suspect]
     Active Substance: RAMIPRIL
  64. ALTACE [Suspect]
     Active Substance: RAMIPRIL
  65. ALTACE [Suspect]
     Active Substance: RAMIPRIL
  66. BISOPROLOL [Suspect]
     Active Substance: BISOPROLOL
     Indication: Product used for unknown indication
     Route: 065
  67. COSENTYX [Suspect]
     Active Substance: SECUKINUMAB
     Indication: Psoriatic arthropathy
  68. COSENTYX [Suspect]
     Active Substance: SECUKINUMAB
     Indication: Psoriasis
     Dosage: 300 MG (ONE EVERY ONE MONTH)
  69. COSENTYX [Suspect]
     Active Substance: SECUKINUMAB
     Indication: Hypertension
  70. COSENTYX [Suspect]
     Active Substance: SECUKINUMAB
     Indication: Product used for unknown indication
     Dosage: 300 MILLIGRAM, QW
  71. COSENTYX [Suspect]
     Active Substance: SECUKINUMAB
     Dosage: 300 MILLIGRAM, QW
  72. COSENTYX [Suspect]
     Active Substance: SECUKINUMAB
     Dosage: 42.857 MILLIGRAM, QW
  73. COSENTYX [Suspect]
     Active Substance: SECUKINUMAB
  74. COSENTYX [Suspect]
     Active Substance: SECUKINUMAB
  75. COSENTYX [Suspect]
     Active Substance: SECUKINUMAB
     Dosage: 42.857 MILLIGRAM, QW
  76. COSENTYX [Suspect]
     Active Substance: SECUKINUMAB
  77. COSENTYX [Suspect]
     Active Substance: SECUKINUMAB
  78. COSENTYX [Suspect]
     Active Substance: SECUKINUMAB
  79. COSENTYX [Suspect]
     Active Substance: SECUKINUMAB
  80. COSENTYX [Suspect]
     Active Substance: SECUKINUMAB
  81. COSENTYX [Suspect]
     Active Substance: SECUKINUMAB
  82. COSENTYX [Suspect]
     Active Substance: SECUKINUMAB
  83. COSENTYX [Suspect]
     Active Substance: SECUKINUMAB
  84. COSENTYX [Suspect]
     Active Substance: SECUKINUMAB
  85. COSENTYX [Suspect]
     Active Substance: SECUKINUMAB
  86. COSENTYX [Suspect]
     Active Substance: SECUKINUMAB
  87. COSENTYX [Suspect]
     Active Substance: SECUKINUMAB
  88. COSENTYX [Suspect]
     Active Substance: SECUKINUMAB
  89. COSENTYX [Suspect]
     Active Substance: SECUKINUMAB
  90. COSENTYX [Suspect]
     Active Substance: SECUKINUMAB
  91. COSENTYX [Suspect]
     Active Substance: SECUKINUMAB
  92. COSENTYX [Suspect]
     Active Substance: SECUKINUMAB
     Dosage: 300 MILLIGRAM, QW
  93. COSENTYX [Suspect]
     Active Substance: SECUKINUMAB
     Dosage: 300 MILLIGRAM, QW
  94. COSENTYX [Suspect]
     Active Substance: SECUKINUMAB
     Dosage: 300 MILLIGRAM, QW
  95. COSENTYX [Suspect]
     Active Substance: SECUKINUMAB
     Dosage: 300 MILLIGRAM, QW
  96. COSENTYX [Suspect]
     Active Substance: SECUKINUMAB
  97. COSENTYX [Suspect]
     Active Substance: SECUKINUMAB
     Dosage: 30 MG, WE
  98. COSENTYX [Suspect]
     Active Substance: SECUKINUMAB
  99. COSENTYX [Suspect]
     Active Substance: SECUKINUMAB
     Dosage: 300 MG (ONE EVERY ONE MONTH)
  100. COSENTYX [Suspect]
     Active Substance: SECUKINUMAB
     Dosage: 300 MG (ONE EVERY ONE MONTH)
  101. COSENTYX [Suspect]
     Active Substance: SECUKINUMAB
     Dosage: 30 MG, WE
  102. COSENTYX [Suspect]
     Active Substance: SECUKINUMAB
     Dosage: 300 MILLIGRAM, QW
  103. COSENTYX [Suspect]
     Active Substance: SECUKINUMAB
  104. COSENTYX [Suspect]
     Active Substance: SECUKINUMAB
     Dosage: 300 MG (ONE EVERY ONE MONTH)
  105. COSENTYX [Suspect]
     Active Substance: SECUKINUMAB
     Dosage: 300 MG, WE
  106. COSENTYX [Suspect]
     Active Substance: SECUKINUMAB
  107. COSENTYX [Suspect]
     Active Substance: SECUKINUMAB
  108. COSENTYX [Suspect]
     Active Substance: SECUKINUMAB
  109. COSENTYX [Suspect]
     Active Substance: SECUKINUMAB
  110. COSENTYX [Suspect]
     Active Substance: SECUKINUMAB
  111. COSENTYX [Suspect]
     Active Substance: SECUKINUMAB
  112. COSENTYX [Suspect]
     Active Substance: SECUKINUMAB
  113. DIPHENHYDRAMINE HYDROCHLORIDE [Suspect]
     Active Substance: DIPHENHYDRAMINE HYDROCHLORIDE
     Indication: Premedication
     Dosage: 50 MILLIGRAM, QD
  114. DIPHENHYDRAMINE HYDROCHLORIDE [Suspect]
     Active Substance: DIPHENHYDRAMINE HYDROCHLORIDE
     Indication: Product used for unknown indication
     Dosage: 50 MILLIGRAM, QD
  115. DIPHENHYDRAMINE HYDROCHLORIDE [Suspect]
     Active Substance: DIPHENHYDRAMINE HYDROCHLORIDE
     Dosage: 50 MILLIGRAM, QD
  116. DIPHENHYDRAMINE HYDROCHLORIDE [Suspect]
     Active Substance: DIPHENHYDRAMINE HYDROCHLORIDE
     Dosage: 50 MG, QD
  117. DIPHENHYDRAMINE HYDROCHLORIDE [Suspect]
     Active Substance: DIPHENHYDRAMINE HYDROCHLORIDE
     Dosage: 50 MG, QD
  118. GLICLAZIDE [Suspect]
     Active Substance: GLICLAZIDE
     Indication: Diabetes mellitus
  119. GLICLAZIDE [Suspect]
     Active Substance: GLICLAZIDE
     Indication: Blood pressure measurement
     Route: 065
  120. GLICLAZIDE [Suspect]
     Active Substance: GLICLAZIDE
     Indication: Product used for unknown indication
     Route: 065
  121. GLICLAZIDE [Suspect]
     Active Substance: GLICLAZIDE
     Route: 065
  122. GLICLAZIDE [Suspect]
     Active Substance: GLICLAZIDE
  123. GLICLAZIDE [Suspect]
     Active Substance: GLICLAZIDE
     Route: 065
  124. GLICLAZIDE [Suspect]
     Active Substance: GLICLAZIDE
     Route: 065
  125. GLICLAZIDE [Suspect]
     Active Substance: GLICLAZIDE
  126. GLICLAZIDE [Suspect]
     Active Substance: GLICLAZIDE
     Route: 065
  127. GLICLAZIDE [Suspect]
     Active Substance: GLICLAZIDE
     Route: 065
  128. GLICLAZIDE [Suspect]
     Active Substance: GLICLAZIDE
     Route: 065
  129. GLICLAZIDE [Suspect]
     Active Substance: GLICLAZIDE
     Route: 065
  130. GLICLAZIDE [Suspect]
     Active Substance: GLICLAZIDE
     Route: 065
  131. GLICLAZIDE [Suspect]
     Active Substance: GLICLAZIDE
  132. GLICLAZIDE [Suspect]
     Active Substance: GLICLAZIDE
  133. GLICLAZIDE [Suspect]
     Active Substance: GLICLAZIDE
     Route: 065
  134. GLICLAZIDE [Suspect]
     Active Substance: GLICLAZIDE
     Route: 065
  135. ERGOCALCIFEROL [Suspect]
     Active Substance: ERGOCALCIFEROL
     Indication: Product used for unknown indication
     Route: 065
  136. ERGOCALCIFEROL [Suspect]
     Active Substance: ERGOCALCIFEROL
     Route: 065
  137. ERGOCALCIFEROL [Suspect]
     Active Substance: ERGOCALCIFEROL
  138. ERGOCALCIFEROL [Suspect]
     Active Substance: ERGOCALCIFEROL
  139. METFORMIN HYDROCHLORIDE [Suspect]
     Active Substance: METFORMIN HYDROCHLORIDE
     Indication: Product used for unknown indication
     Dosage: UNK UNK, QD
  140. METFORMIN HYDROCHLORIDE [Suspect]
     Active Substance: METFORMIN HYDROCHLORIDE
  141. METFORMIN HYDROCHLORIDE [Suspect]
     Active Substance: METFORMIN HYDROCHLORIDE
  142. METFORMIN HYDROCHLORIDE [Suspect]
     Active Substance: METFORMIN HYDROCHLORIDE
  143. METFORMIN HYDROCHLORIDE [Suspect]
     Active Substance: METFORMIN HYDROCHLORIDE
  144. METFORMIN HYDROCHLORIDE [Suspect]
     Active Substance: METFORMIN HYDROCHLORIDE
  145. METFORMIN HYDROCHLORIDE [Suspect]
     Active Substance: METFORMIN HYDROCHLORIDE
  146. METFORMIN HYDROCHLORIDE [Suspect]
     Active Substance: METFORMIN HYDROCHLORIDE
  147. METHYLPREDNISOLONE SODIUM SUCCINATE [Suspect]
     Active Substance: METHYLPREDNISOLONE SODIUM SUCCINATE
     Indication: Premedication
     Dosage: 100 MILLIGRAM, QD
  148. METHYLPREDNISOLONE SODIUM SUCCINATE [Suspect]
     Active Substance: METHYLPREDNISOLONE SODIUM SUCCINATE
     Indication: Product used for unknown indication
     Dosage: 100 MG, QD
  149. PREDNISONE [Suspect]
     Active Substance: PREDNISONE
     Indication: Product used for unknown indication
     Route: 065
  150. PREDNISONE [Suspect]
     Active Substance: PREDNISONE
     Route: 065
  151. SYNTHROID [Suspect]
     Active Substance: LEVOTHYROXINE SODIUM
     Indication: Product used for unknown indication
     Route: 065
  152. SYNTHROID [Suspect]
     Active Substance: LEVOTHYROXINE SODIUM
     Route: 065
  153. SYNTHROID [Suspect]
     Active Substance: LEVOTHYROXINE SODIUM
     Route: 065
  154. SYNTHROID [Suspect]
     Active Substance: LEVOTHYROXINE SODIUM
     Route: 065
  155. SYNTHROID [Suspect]
     Active Substance: LEVOTHYROXINE SODIUM
     Route: 065
  156. SYNTHROID [Suspect]
     Active Substance: LEVOTHYROXINE SODIUM
     Route: 065
  157. SYNTHROID [Suspect]
     Active Substance: LEVOTHYROXINE SODIUM
     Route: 065
  158. JANUVIA [Suspect]
     Active Substance: SITAGLIPTIN PHOSPHATE
     Indication: Product used for unknown indication
  159. JANUVIA [Suspect]
     Active Substance: SITAGLIPTIN PHOSPHATE
  160. JANUVIA [Suspect]
     Active Substance: SITAGLIPTIN PHOSPHATE
  161. LIPITOR [Suspect]
     Active Substance: ATORVASTATIN CALCIUM
     Indication: Product used for unknown indication
     Dosage: 20 MILLIGRAM, QD
  162. LIPITOR [Suspect]
     Active Substance: ATORVASTATIN CALCIUM
     Dosage: 20 MG, QD
  163. IRBESARTAN [Suspect]
     Active Substance: IRBESARTAN
     Indication: Hypertension
     Dosage: 300 MILLIGRAM, QD
  164. IRBESARTAN [Suspect]
     Active Substance: IRBESARTAN
  165. IRBESARTAN [Suspect]
     Active Substance: IRBESARTAN
  166. IRBESARTAN [Suspect]
     Active Substance: IRBESARTAN
  167. IRBESARTAN [Suspect]
     Active Substance: IRBESARTAN
  168. IRBESARTAN [Suspect]
     Active Substance: IRBESARTAN
  169. IRBESARTAN [Suspect]
     Active Substance: IRBESARTAN
  170. IRBESARTAN [Suspect]
     Active Substance: IRBESARTAN
     Dosage: 300 MG, QD
  171. IRBESARTAN [Suspect]
     Active Substance: IRBESARTAN
  172. IRBESARTAN [Suspect]
     Active Substance: IRBESARTAN
     Dosage: 1 DOSAGE FORM,DAILY
  173. GRAVOL [Suspect]
     Active Substance: DIMENHYDRINATE
     Indication: Premedication
     Dosage: 50 MILLIGRAM, QD
     Route: 065
  174. GRAVOL [Suspect]
     Active Substance: DIMENHYDRINATE
     Indication: Product used for unknown indication
     Dosage: 100 MILLIGRAM, QD
     Route: 065
  175. GRAVOL [Suspect]
     Active Substance: DIMENHYDRINATE
     Route: 065
  176. GRAVOL [Suspect]
     Active Substance: DIMENHYDRINATE
     Route: 065
  177. GRAVOL [Suspect]
     Active Substance: DIMENHYDRINATE
     Route: 065
  178. GRAVOL [Suspect]
     Active Substance: DIMENHYDRINATE
     Route: 065
  179. GRAVOL [Suspect]
     Active Substance: DIMENHYDRINATE
     Dosage: 50 MG, QD
     Route: 065
  180. GRAVOL [Suspect]
     Active Substance: DIMENHYDRINATE
     Dosage: 100 MG, QD
     Route: 065
  181. METHOTREXATE [Suspect]
     Active Substance: METHOTREXATE
     Indication: Product used for unknown indication
  182. METHOTREXATE [Suspect]
     Active Substance: METHOTREXATE
  183. METHOTREXATE [Suspect]
     Active Substance: METHOTREXATE
     Route: 065
  184. METHOTREXATE [Suspect]
     Active Substance: METHOTREXATE
  185. METHOTREXATE [Suspect]
     Active Substance: METHOTREXATE
  186. METHOTREXATE [Suspect]
     Active Substance: METHOTREXATE
  187. PROCHLORPERAZINE [Suspect]
     Active Substance: PROCHLORPERAZINE
     Indication: Vomiting
     Route: 065
  188. PROCHLORPERAZINE [Suspect]
     Active Substance: PROCHLORPERAZINE
     Route: 065
  189. ZOLPIDEM [Suspect]
     Active Substance: ZOLPIDEM TARTRATE
     Indication: Product used for unknown indication
     Route: 065
  190. ZOLPIDEM [Suspect]
     Active Substance: ZOLPIDEM TARTRATE
     Route: 065
  191. GLICLAZIDE [Suspect]
     Active Substance: GLICLAZIDE
     Indication: Diabetes mellitus
     Route: 065
  192. GLICLAZIDE [Suspect]
     Active Substance: GLICLAZIDE
     Indication: Blood pressure measurement
  193. ACITRETIN [Concomitant]
     Active Substance: ACITRETIN
     Indication: Product used for unknown indication
  194. ACITRETIN [Concomitant]
     Active Substance: ACITRETIN
  195. ACITRETIN [Concomitant]
     Active Substance: ACITRETIN
  196. ACITRETIN [Concomitant]
     Active Substance: ACITRETIN
  197. AMEVIVE [Concomitant]
     Active Substance: ALEFACEPT
     Indication: Product used for unknown indication
  198. AMEVIVE [Concomitant]
     Active Substance: ALEFACEPT
     Route: 065
  199. AMEVIVE [Concomitant]
     Active Substance: ALEFACEPT
  200. AMEVIVE [Concomitant]
     Active Substance: ALEFACEPT
  201. COAL TAR [Concomitant]
     Active Substance: COAL TAR
     Indication: Product used for unknown indication
     Route: 065
  202. COAL TAR [Concomitant]
     Active Substance: COAL TAR
     Route: 065
  203. CYMBALTA [Concomitant]
     Active Substance: DULOXETINE HYDROCHLORIDE
     Indication: Product used for unknown indication
     Route: 065
  204. CYMBALTA [Concomitant]
     Active Substance: DULOXETINE HYDROCHLORIDE
     Route: 065
  205. CYMBALTA [Concomitant]
     Active Substance: DULOXETINE HYDROCHLORIDE
  206. DOVONEX [Concomitant]
     Active Substance: CALCIPOTRIENE
     Indication: Product used for unknown indication
     Route: 065
  207. DOVONEX [Concomitant]
     Active Substance: CALCIPOTRIENE
     Route: 065
  208. DOVONEX [Concomitant]
     Active Substance: CALCIPOTRIENE
  209. ROSUVASTATIN [Concomitant]
     Active Substance: ROSUVASTATIN
     Indication: Product used for unknown indication
     Route: 065
  210. ROSUVASTATIN [Concomitant]
     Active Substance: ROSUVASTATIN
     Route: 065
  211. ROSUVASTATIN [Concomitant]
     Active Substance: ROSUVASTATIN
  212. ROSUVASTATIN [Concomitant]
     Active Substance: ROSUVASTATIN
  213. ROSUVASTATIN [Concomitant]
     Active Substance: ROSUVASTATIN
  214. STELARA [Concomitant]
     Active Substance: USTEKINUMAB
     Indication: Product used for unknown indication
  215. STELARA [Concomitant]
     Active Substance: USTEKINUMAB
  216. STELARA [Concomitant]
     Active Substance: USTEKINUMAB
  217. STELARA [Concomitant]
     Active Substance: USTEKINUMAB
  218. AVAPRO [Concomitant]
     Active Substance: IRBESARTAN
     Indication: Product used for unknown indication
     Route: 065
  219. AVAPRO [Concomitant]
     Active Substance: IRBESARTAN
  220. AVAPRO [Concomitant]
     Active Substance: IRBESARTAN
  221. AMLODIPINE BESYLATE [Concomitant]
     Active Substance: AMLODIPINE BESYLATE
     Indication: Product used for unknown indication
     Route: 065
  222. AMLODIPINE BESYLATE [Concomitant]
     Active Substance: AMLODIPINE BESYLATE
     Route: 065
  223. AMLODIPINE BESYLATE [Concomitant]
     Active Substance: AMLODIPINE BESYLATE
  224. AMLODIPINE BESYLATE [Concomitant]
     Active Substance: AMLODIPINE BESYLATE
     Route: 065
  225. AMLODIPINE BESYLATE [Concomitant]
     Active Substance: AMLODIPINE BESYLATE
  226. AMLODIPINE BESYLATE [Concomitant]
     Active Substance: AMLODIPINE BESYLATE
     Route: 065
  227. AMLODIPINE BESYLATE [Concomitant]
     Active Substance: AMLODIPINE BESYLATE
     Route: 065
  228. CYANOCOBALAMIN [Concomitant]
     Active Substance: CYANOCOBALAMIN
     Indication: Product used for unknown indication
     Route: 065
  229. CYANOCOBALAMIN [Concomitant]
     Active Substance: CYANOCOBALAMIN
     Route: 065
  230. MEDROL [Concomitant]
     Active Substance: METHYLPREDNISOLONE
     Indication: Product used for unknown indication
     Route: 065
  231. MEDROL [Concomitant]
     Active Substance: METHYLPREDNISOLONE
     Route: 065
  232. MEDROL [Concomitant]
     Active Substance: METHYLPREDNISOLONE
  233. DOMPERIDONE [Concomitant]
     Active Substance: DOMPERIDONE
     Indication: Product used for unknown indication
     Route: 065
  234. DOMPERIDONE [Concomitant]
     Active Substance: DOMPERIDONE
     Route: 065
  235. LEVOTHYROXINE [Concomitant]
     Active Substance: LEVOTHYROXINE
     Indication: Product used for unknown indication
     Route: 065
  236. LEVOTHYROXINE [Concomitant]
     Active Substance: LEVOTHYROXINE
  237. PANTOPRAZOLE MAGNESIUM [Concomitant]
     Active Substance: PANTOPRAZOLE MAGNESIUM
     Indication: Product used for unknown indication
     Route: 065
  238. PANTOPRAZOLE MAGNESIUM [Concomitant]
     Active Substance: PANTOPRAZOLE MAGNESIUM
  239. TELMISARTAN [Concomitant]
     Active Substance: TELMISARTAN
     Indication: Product used for unknown indication
     Route: 065
  240. TELMISARTAN [Concomitant]
     Active Substance: TELMISARTAN
     Route: 065
  241. TELMISARTAN [Concomitant]
     Active Substance: TELMISARTAN
  242. TYLENOL [Concomitant]
     Active Substance: ACETAMINOPHEN
     Indication: Product used for unknown indication
     Route: 065
  243. TYLENOL [Concomitant]
     Active Substance: ACETAMINOPHEN
     Route: 065
  244. TYLENOL [Concomitant]
     Active Substance: ACETAMINOPHEN
     Route: 065
  245. TYLENOL [Concomitant]
     Active Substance: ACETAMINOPHEN
  246. LEVEMIR [Concomitant]
     Active Substance: INSULIN DETEMIR
     Indication: Product used for unknown indication
     Route: 065
  247. LEVEMIR [Concomitant]
     Active Substance: INSULIN DETEMIR
     Route: 065
  248. LEVEMIR [Concomitant]
     Active Substance: INSULIN DETEMIR
  249. LEVEMIR [Concomitant]
     Active Substance: INSULIN DETEMIR
  250. LANTUS [Concomitant]
     Active Substance: INSULIN GLARGINE
     Indication: Product used for unknown indication
     Route: 065
  251. LANTUS [Concomitant]
     Active Substance: INSULIN GLARGINE
     Route: 065
  252. LANTUS [Concomitant]
     Active Substance: INSULIN GLARGINE
  253. LANTUS [Concomitant]
     Active Substance: INSULIN GLARGINE
  254. HUMALOG [Concomitant]
     Active Substance: INSULIN LISPRO
     Indication: Product used for unknown indication
     Route: 065
  255. HUMALOG [Concomitant]
     Active Substance: INSULIN LISPRO
  256. HUMALOG [Concomitant]
     Active Substance: INSULIN LISPRO
  257. HYDROCHLOROTHIAZIDE [Concomitant]
     Active Substance: HYDROCHLOROTHIAZIDE
     Indication: Product used for unknown indication
     Route: 065
  258. LYRICA [Concomitant]
     Active Substance: PREGABALIN
     Indication: Product used for unknown indication
     Route: 065
  259. LYRICA [Concomitant]
     Active Substance: PREGABALIN
  260. GLUCOPHAGE [Concomitant]
     Active Substance: METFORMIN HYDROCHLORIDE
     Indication: Product used for unknown indication
     Route: 065
  261. GLUCOPHAGE [Concomitant]
     Active Substance: METFORMIN HYDROCHLORIDE
  262. RAMIPRIL [Suspect]
     Active Substance: RAMIPRIL
     Indication: Product used for unknown indication
  263. RAMIPRIL [Suspect]
     Active Substance: RAMIPRIL
  264. PEDIAPRED [Suspect]
     Active Substance: PREDNISOLONE SODIUM PHOSPHATE
     Indication: Product used for unknown indication
  265. PEDIAPRED [Suspect]
     Active Substance: PREDNISOLONE SODIUM PHOSPHATE
  266. PEDIAPRED [Suspect]
     Active Substance: PREDNISOLONE SODIUM PHOSPHATE
  267. PEDIAPRED [Suspect]
     Active Substance: PREDNISOLONE SODIUM PHOSPHATE
  268. EZETIMIBE [Concomitant]
     Active Substance: EZETIMIBE
     Indication: Product used for unknown indication
     Route: 065
  269. TUMS ULTRA [Suspect]
     Active Substance: CALCIUM CARBONATE
     Indication: Product used for unknown indication
  270. OMEPRAZOLE MAGNESIUM [Suspect]
     Active Substance: OMEPRAZOLE MAGNESIUM
     Indication: Product used for unknown indication
  271. DIPHENHYDRAMINE [Suspect]
     Active Substance: DIPHENHYDRAMINE
     Indication: Premedication
     Dosage: 50 MG, QD
  272. DIPHENHYDRAMINE [Suspect]
     Active Substance: DIPHENHYDRAMINE
     Indication: Product used for unknown indication
  273. PANTOPRAZOLE SODIUM [Concomitant]
     Active Substance: PANTOPRAZOLE SODIUM
     Indication: Product used for unknown indication
  274. ZOFRAN [Suspect]
     Active Substance: ONDANSETRON HYDROCHLORIDE
     Indication: Product used for unknown indication
  275. RITUXAN [Suspect]
     Active Substance: RITUXIMAB
     Indication: Sjogren^s syndrome
  276. RITUXAN [Suspect]
     Active Substance: RITUXIMAB
     Indication: Rheumatoid arthritis
  277. RITUXAN [Suspect]
     Active Substance: RITUXIMAB
  278. RITUXAN [Suspect]
     Active Substance: RITUXIMAB
  279. RITUXAN [Suspect]
     Active Substance: RITUXIMAB
  280. RITUXAN [Suspect]
     Active Substance: RITUXIMAB
  281. RITUXAN [Suspect]
     Active Substance: RITUXIMAB
  282. RITUXAN [Suspect]
     Active Substance: RITUXIMAB
  283. RITUXAN [Suspect]
     Active Substance: RITUXIMAB
  284. RITUXAN [Suspect]
     Active Substance: RITUXIMAB
  285. RITUXAN [Suspect]
     Active Substance: RITUXIMAB
  286. RITUXAN [Suspect]
     Active Substance: RITUXIMAB
  287. RITUXAN [Suspect]
     Active Substance: RITUXIMAB
  288. RITUXAN [Suspect]
     Active Substance: RITUXIMAB
  289. DEPO-MEDROL [Concomitant]
     Active Substance: METHYLPREDNISOLONE ACETATE
     Indication: Product used for unknown indication
  290. PROCHLORPERAZINE [Suspect]
     Active Substance: PROCHLORPERAZINE
     Indication: Vomiting
  291. HYDROCHLOROTHIAZIDE [Concomitant]
     Active Substance: HYDROCHLOROTHIAZIDE
     Indication: Product used for unknown indication
     Route: 065
  292. PANTOPRAZOLE [Concomitant]
     Active Substance: PANTOPRAZOLE
     Indication: Product used for unknown indication
  293. ASPIRIN [Suspect]
     Active Substance: ASPIRIN
     Indication: Product used for unknown indication
  294. ASPIRIN [Suspect]
     Active Substance: ASPIRIN
  295. AMLODIPINE BESYLATE [Suspect]
     Active Substance: AMLODIPINE BESYLATE
     Indication: Product used for unknown indication
  296. AMLODIPINE BESYLATE [Suspect]
     Active Substance: AMLODIPINE BESYLATE
  297. AMLODIPINE BESYLATE [Suspect]
     Active Substance: AMLODIPINE BESYLATE
  298. AMLODIPINE BESYLATE [Suspect]
     Active Substance: AMLODIPINE BESYLATE
  299. AMLODIPINE BESYLATE [Suspect]
     Active Substance: AMLODIPINE BESYLATE
  300. ACETAMINOPHEN\ASCORBIC ACID [Concomitant]
     Active Substance: ACETAMINOPHEN\ASCORBIC ACID
     Indication: Product used for unknown indication
  301. LIDOCAINE HYDROCHLORIDE [Concomitant]
     Active Substance: LIDOCAINE HYDROCHLORIDE
     Indication: Product used for unknown indication
  302. METFORMIN [Suspect]
     Active Substance: METFORMIN HYDROCHLORIDE
     Indication: Product used for unknown indication
  303. AMLODIPINE MALEATE [Suspect]
     Active Substance: AMLODIPINE MALEATE
     Indication: Product used for unknown indication
  304. ESOMEPRAZOLE MAGNESIUM [Suspect]
     Active Substance: ESOMEPRAZOLE MAGNESIUM
     Indication: Product used for unknown indication
  305. ESOMEPRAZOLE MAGNESIUM [Suspect]
     Active Substance: ESOMEPRAZOLE MAGNESIUM
  306. ASPIRIN [Suspect]
     Active Substance: ASPIRIN
     Indication: Product used for unknown indication
  307. LEVOTHYROXINE SODIUM [Suspect]
     Active Substance: LEVOTHYROXINE SODIUM
     Indication: Product used for unknown indication
     Route: 065
  308. METHYLPREDNISOLONE ACETATE [Concomitant]
     Active Substance: METHYLPREDNISOLONE ACETATE
     Indication: Product used for unknown indication
  309. RITUXIMAB [Suspect]
     Active Substance: RITUXIMAB
     Indication: Rheumatoid arthritis
  310. RITUXIMAB [Suspect]
     Active Substance: RITUXIMAB
     Indication: Sjogren^s syndrome
  311. GLICLAZIDE [Suspect]
     Active Substance: GLICLAZIDE
     Indication: Diabetes mellitus
  312. GLICLAZIDE [Suspect]
     Active Substance: GLICLAZIDE
     Indication: Blood pressure measurement
  313. SITAGLIPTIN PHOSPHATE [Suspect]
     Active Substance: SITAGLIPTIN PHOSPHATE
     Indication: Product used for unknown indication
  314. IRBESARTAN [Suspect]
     Active Substance: IRBESARTAN
     Indication: Hypertension
  315. IRBESARTAN [Suspect]
     Active Substance: IRBESARTAN
  316. IRBESARTAN [Suspect]
     Active Substance: IRBESARTAN
  317. IRBESARTAN [Suspect]
     Active Substance: IRBESARTAN
  318. IRBESARTAN [Suspect]
     Active Substance: IRBESARTAN
  319. IRBESARTAN [Suspect]
     Active Substance: IRBESARTAN
  320. IRBESARTAN [Suspect]
     Active Substance: IRBESARTAN
  321. IRBESARTAN [Suspect]
     Active Substance: IRBESARTAN
  322. VITAMIN C [Concomitant]
     Active Substance: ASCORBIC ACID
     Indication: Product used for unknown indication
  323. ESOMEPRAZOLE [Suspect]
     Active Substance: ESOMEPRAZOLE
     Indication: Product used for unknown indication
  324. ATACAND [Concomitant]
     Active Substance: CANDESARTAN CILEXETIL
     Indication: Hypertension

REACTIONS (53)
  - Adjustment disorder [Not Recovered/Not Resolved]
  - Affect lability [Not Recovered/Not Resolved]
  - Angina pectoris [Not Recovered/Not Resolved]
  - Anxiety [Not Recovered/Not Resolved]
  - Aphasia [Not Recovered/Not Resolved]
  - Arterial occlusive disease [Not Recovered/Not Resolved]
  - Arthritis [Not Recovered/Not Resolved]
  - Asthenia [Not Recovered/Not Resolved]
  - Blood pressure increased [Not Recovered/Not Resolved]
  - Carotid artery thrombosis [Not Recovered/Not Resolved]
  - Cataract [Not Recovered/Not Resolved]
  - Cerebrovascular accident [Not Recovered/Not Resolved]
  - Chest discomfort [Not Recovered/Not Resolved]
  - Confusional state [Not Recovered/Not Resolved]
  - Coordination abnormal [Not Recovered/Not Resolved]
  - Cough [Not Recovered/Not Resolved]
  - Cystitis [Not Recovered/Not Resolved]
  - Dysarthria [Not Recovered/Not Resolved]
  - Dysphagia [Not Recovered/Not Resolved]
  - Eating disorder [Not Recovered/Not Resolved]
  - Fall [Not Recovered/Not Resolved]
  - Fatigue [Not Recovered/Not Resolved]
  - Gangrene [Not Recovered/Not Resolved]
  - Gastrointestinal disorder [Not Recovered/Not Resolved]
  - Headache [Not Recovered/Not Resolved]
  - Hemiparesis [Not Recovered/Not Resolved]
  - Hemiplegia [Not Recovered/Not Resolved]
  - Influenza [Not Recovered/Not Resolved]
  - Influenza like illness [Not Recovered/Not Resolved]
  - Malaise [Not Recovered/Not Resolved]
  - Motor dysfunction [Not Recovered/Not Resolved]
  - Muscle spasticity [Not Recovered/Not Resolved]
  - Muscular weakness [Not Recovered/Not Resolved]
  - Nasopharyngitis [Not Recovered/Not Resolved]
  - Nausea [Not Recovered/Not Resolved]
  - Neurologic neglect syndrome [Not Recovered/Not Resolved]
  - Pain [Not Recovered/Not Resolved]
  - Palpitations [Not Recovered/Not Resolved]
  - Personality disorder [Not Recovered/Not Resolved]
  - Pneumonia [Not Recovered/Not Resolved]
  - Psoriasis [Not Recovered/Not Resolved]
  - Pyrexia [Not Recovered/Not Resolved]
  - Respiratory tract congestion [Not Recovered/Not Resolved]
  - Rheumatoid arthritis [Not Recovered/Not Resolved]
  - Rhinorrhoea [Not Recovered/Not Resolved]
  - Sensory loss [Not Recovered/Not Resolved]
  - Sinus congestion [Not Recovered/Not Resolved]
  - Sinus disorder [Not Recovered/Not Resolved]
  - Sinusitis [Not Recovered/Not Resolved]
  - Skin exfoliation [Not Recovered/Not Resolved]
  - Skin haemorrhage [Not Recovered/Not Resolved]
  - Sneezing [Not Recovered/Not Resolved]
  - Vomiting [Not Recovered/Not Resolved]
